FAERS Safety Report 6017494-0 (Version None)
Quarter: 2008Q4

REPORT INFORMATION
  Report Type: 
  Country: None (occurrence: None)
  Receive Date: 20081223
  Receipt Date: 20080312
  Transmission Date: 20090506
  Serious: Yes (Hospitalization)
  Sender: FDA-Public Use
  Company Number: US-BRISTOL-MYERS SQUIBB COMPANY-14087407

PATIENT
  Age: 65 Year
  Sex: Female

DRUGS (6)
  1. CARDIOLITE [Suspect]
     Indication: CORONARY ARTERY DISEASE
     Dosage: 1 DOSAGE FORM = 15.3 MILLICURIE REST AND 45 MILLICURIE STRESS
     Route: 042
  2. NORVASC [Concomitant]
  3. TOPROL-XL [Concomitant]
  4. LIPITOR [Concomitant]
  5. DIOVAN [Concomitant]
  6. HYDROCHLOROTHIAZIDE [Concomitant]

REACTIONS (1)
  - RESPIRATORY DISTRESS [None]
